FAERS Safety Report 13309611 (Version 1)
Quarter: 2017Q1

REPORT INFORMATION
  Report Type: Spontaneous
  Country: SI (occurrence: SI)
  Receive Date: 20170309
  Receipt Date: 20170309
  Transmission Date: 20170428
  Serious: Yes (Hospitalization, Other)
  Sender: FDA-Public Use
  Company Number: SI-BAYER-2017-023971

PATIENT
  Age: 56 Year
  Sex: Male

DRUGS (3)
  1. NEXAVAR [Suspect]
     Active Substance: SORAFENIB
     Indication: HEPATOCELLULAR CARCINOMA
     Dosage: UNK
     Dates: start: 200909, end: 200912
  2. NEXAVAR [Suspect]
     Active Substance: SORAFENIB
     Indication: HEPATOCELLULAR CARCINOMA
     Dosage: UNK
     Dates: end: 2010
  3. NEXAVAR [Suspect]
     Active Substance: SORAFENIB
     Indication: HEPATOCELLULAR CARCINOMA
     Dosage: UNK
     Dates: start: 200901

REACTIONS (9)
  - Hepatic encephalopathy [None]
  - Malaise [None]
  - Diarrhoea [None]
  - Deep vein thrombosis [None]
  - Ascites [None]
  - Quality of life decreased [None]
  - Pruritus [None]
  - Back pain [None]
  - Diabetes mellitus inadequate control [None]

NARRATIVE: CASE EVENT DATE: 2009
